FAERS Safety Report 6249790-6 (Version None)
Quarter: 2009Q2

REPORT INFORMATION
  Report Type: 
  Country: None (occurrence: None)
  Receive Date: 20090629
  Receipt Date: 20090623
  Transmission Date: 20091009
  Serious: Yes (Hospitalization)
  Sender: FDA-Public Use
  Company Number: JP-ELI_LILLY_AND_COMPANY-JP200806006041

PATIENT
  Sex: Female
  Weight: 60.7 kg

DRUGS (9)
  1. PEMETREXED [Suspect]
     Indication: PLEURAL MESOTHELIOMA MALIGNANT
     Dosage: 500 MG/M2, OTHER
     Route: 042
     Dates: start: 20080219, end: 20080313
  2. CARBOPLATIN [Concomitant]
     Indication: PLEURAL MESOTHELIOMA MALIGNANT
     Dosage: 5AUC
     Route: 042
     Dates: start: 20080219, end: 20080313
  3. PANVITAN [Concomitant]
     Dosage: 1 G, DAILY (1/D)
     Route: 048
     Dates: start: 20080212, end: 20080502
  4. CYANOCOBALAMIN [Concomitant]
     Dosage: 1 MG, OTHER
     Route: 030
     Dates: start: 20080212, end: 20080212
  5. OXYCONTIN [Concomitant]
     Indication: CANCER PAIN
     Dosage: 10 MG, 2/D
     Route: 048
     Dates: end: 20080413
  6. TEGRETOL [Concomitant]
     Dosage: 200 MG, 2/D
     Route: 048
  7. NOVAMIN [Concomitant]
     Dosage: 5 MG, 2/D
     Route: 048
  8. LOXOPROFEN [Concomitant]
     Indication: CANCER PAIN
     Dosage: 60 MG, 3/D
     Route: 048
     Dates: end: 20080328
  9. ADALAT CR /THA/ [Concomitant]
     Dosage: 20 MG, 2/D
     Route: 048

REACTIONS (2)
  - RADIATION PNEUMONITIS [None]
  - WHITE BLOOD CELL COUNT DECREASED [None]
